FAERS Safety Report 9080428 (Version 1)
Quarter: 2013Q1

REPORT INFORMATION
  Report Type: Report from Study
  Country: US (occurrence: US)
  Receive Date: 20130130
  Receipt Date: 20130130
  Transmission Date: 20140127
  Serious: No
  Sender: FDA-Public Use
  Company Number: US-ABBOTT-12P-163-0966471-00

PATIENT
  Age: 74 None
  Sex: Female
  Weight: 61.29 kg

DRUGS (9)
  1. HUMIRA 40 MG/0.8 ML PEN [Suspect]
     Indication: RHEUMATOID ARTHRITIS
     Dates: start: 201206
  2. TOPROL [Concomitant]
     Indication: HYPERTENSION
     Dosage: 50MG DAILY
     Route: 048
  3. LUNESTA [Concomitant]
     Indication: INSOMNIA
     Dosage: 3MG AT NIGHT
     Route: 048
  4. SYNTHYROID [Concomitant]
     Indication: BLOOD THYROID STIMULATING HORMONE DECREASED
     Dosage: 112MCG DAILY
  5. BABY ASPIRIN [Concomitant]
     Indication: PROPHYLAXIS
     Dosage: 81MG DAILY
     Route: 048
  6. METHOTREXATE [Concomitant]
     Indication: RHEUMATOID ARTHRITIS
  7. EXELON [Concomitant]
     Indication: MEMORY IMPAIRMENT
  8. PROPANOLOL [Concomitant]
     Indication: HYPERTENSION
  9. VITAMINS [Concomitant]
     Indication: VITAMIN SUPPLEMENTATION

REACTIONS (7)
  - Injection site bruising [Not Recovered/Not Resolved]
  - Injection site bruising [Unknown]
  - Injection site pain [Not Recovered/Not Resolved]
  - Injection site pain [Not Recovered/Not Resolved]
  - Injection site haemorrhage [Recovered/Resolved]
  - Pain in extremity [Unknown]
  - Injection site swelling [Unknown]
